FAERS Safety Report 25240152 (Version 1)
Quarter: 2025Q2

REPORT INFORMATION
  Report Type: Spontaneous
  Country: DK (occurrence: DK)
  Receive Date: 20250425
  Receipt Date: 20250425
  Transmission Date: 20250716
  Serious: Yes (Disabling, Other)
  Sender: Harrow Health
  Company Number: DK-HARROW-HAR-2025-DK-00106

PATIENT
  Age: 8 Decade
  Sex: Female

DRUGS (1)
  1. MAXIDEX [Suspect]
     Active Substance: DEXAMETHASONE
     Indication: Corneal transplant
     Dates: start: 2018

REACTIONS (3)
  - Visual impairment [Not Recovered/Not Resolved]
  - Optic nerve cupping [Not Recovered/Not Resolved]
  - Intraocular pressure increased [Recovered/Resolved]

NARRATIVE: CASE EVENT DATE: 20200101
